FAERS Safety Report 22018420 (Version 1)
Quarter: 2023Q1

REPORT INFORMATION
  Report Type: Spontaneous
  Country: CN (occurrence: CN)
  Receive Date: 20230221
  Receipt Date: 20230221
  Transmission Date: 20230418
  Serious: Yes (Hospitalization, Other)
  Sender: FDA-Public Use
  Company Number: None

PATIENT
  Age: 11 Year
  Sex: Male
  Weight: 48 kg

DRUGS (6)
  1. CYCLOPHOSPHAMIDE [Suspect]
     Active Substance: CYCLOPHOSPHAMIDE
     Indication: Malignant connective tissue neoplasm
     Dosage: 1.6 G, QD, DILUTED WITH 500 ML OF (4:1) GLUCOSE SODIUM CHLORIDE INJECTION
     Route: 041
     Dates: start: 20221222, end: 20221222
  2. DEXTROSE\SODIUM CHLORIDE [Suspect]
     Active Substance: DEXTROSE\SODIUM CHLORIDE
     Indication: Medication dilution
     Dosage: (4:1), 500 ML, QD, USED TO DILUTE 1.6 G OF CYCLOPHOSPHAMIDE
     Route: 041
     Dates: start: 20211222, end: 20211222
  3. SODIUM CHLORIDE [Suspect]
     Active Substance: SODIUM CHLORIDE
     Indication: Medication dilution
     Dosage: 250 ML, QD, USED TO DILUTE 52 MG OF EPIRUBICIN HYDROCHLORIDE
     Route: 041
     Dates: start: 20211222, end: 20211222
  4. SODIUM CHLORIDE [Suspect]
     Active Substance: SODIUM CHLORIDE
     Dosage: 50 ML, QD, USED TO DILUTE 4 MG OF VINDESINE SULFATE
     Route: 041
     Dates: start: 20211222, end: 20211222
  5. EPIRUBICIN [Suspect]
     Active Substance: EPIRUBICIN
     Indication: Malignant connective tissue neoplasm
     Dosage: 52 MG, QD, DILUTED WITH 250 ML OF 0.9% SODIUM CHLORIDE
     Route: 041
     Dates: start: 20221222, end: 20221222
  6. VINDESINE SULFATE [Suspect]
     Active Substance: VINDESINE SULFATE
     Indication: Malignant connective tissue neoplasm
     Dosage: 4 MG, QD, DILUTED WITH 50 ML OF 0.9% SODIUM CHLORIDE
     Route: 041
     Dates: start: 20221222, end: 20221222

REACTIONS (1)
  - Myelosuppression [Recovering/Resolving]

NARRATIVE: CASE EVENT DATE: 20221229
